FAERS Safety Report 8996507 (Version 2)
Quarter: 2013Q1

REPORT INFORMATION
  Report Type: Spontaneous
  Country: US (occurrence: US)
  Receive Date: 20130104
  Receipt Date: 20130128
  Transmission Date: 20140127
  Serious: No
  Sender: FDA-Public Use
  Company Number: US-PFIZER INC-2013001906

PATIENT
  Sex: Female

DRUGS (12)
  1. EFFEXOR XR [Suspect]
     Indication: DEPRESSION
     Dosage: 225 MG, 1X/DAY
     Dates: start: 2001
  2. EFFEXOR XR [Suspect]
     Dosage: 150 MG, 1X/DAY
     Dates: end: 2012
  3. EFFEXOR XR [Suspect]
     Dosage: 187.5 MG, 1X/DAY
  4. LYRICA [Concomitant]
     Indication: NEUROPATHY PERIPHERAL
     Dosage: UNK
  5. ALTACE [Concomitant]
     Dosage: 10 MG, UNK
  6. NORVASC [Concomitant]
     Dosage: UNK
  7. FUROSEMIDE [Concomitant]
     Dosage: UNK
  8. NORTRIPTYLINE [Concomitant]
     Dosage: UNK
  9. METFORMIN [Concomitant]
     Dosage: UNK
  10. LANTUS [Concomitant]
     Dosage: UNK
  11. ACTOS [Concomitant]
     Dosage: 15 MG, UNK
  12. LIPITOR [Concomitant]
     Dosage: UNK

REACTIONS (3)
  - Hepatic enzyme increased [Unknown]
  - Glycosylated haemoglobin increased [Unknown]
  - Somnolence [Unknown]
